FAERS Safety Report 7619825-4 (Version None)
Quarter: 2011Q3

REPORT INFORMATION
  Report Type: 
  Country: None (occurrence: None)
  Receive Date: 20110719
  Receipt Date: 20110713
  Transmission Date: 20111222
  Serious: No
  Sender: FDA-Public Use
  Company Number: US-B.I. PHARMACEUTICALS,INC./RIDGEFIELD-2011-BP-17650BP

PATIENT
  Age: 68 Year
  Sex: Female

DRUGS (4)
  1. PRADAXA [Suspect]
     Indication: ATRIAL FIBRILLATION
     Dosage: 300 MG
     Route: 048
     Dates: start: 20110708
  2. HYDRALAZINE HCL [Concomitant]
     Indication: HYPERTENSION
     Dosage: 25 MG
     Dates: start: 19800101
  3. HYZAAR [Concomitant]
     Indication: HYPERTENSION
     Dates: start: 19800101
  4. LOPRESSER [Concomitant]
     Indication: HYPERTENSION
     Dosage: 50 MG
     Dates: start: 19800101

REACTIONS (2)
  - DIARRHOEA [None]
  - ASTHENIA [None]
